FAERS Safety Report 5626057-8 (Version None)
Quarter: 2008Q1

REPORT INFORMATION
  Report Type: 
  Country: None (occurrence: None)
  Receive Date: 20080214
  Receipt Date: 20080206
  Transmission Date: 20080703
  Serious: Yes (Other)
  Sender: FDA-Public Use
  Company Number: PHEH2006US05803

PATIENT
  Age: 66 Year
  Sex: Female
  Weight: 75.736 kg

DRUGS (15)
  1. AREDIA [Suspect]
     Indication: BREAST CANCER METASTATIC
     Dosage: 90 MG IV Q3 WEEKS
  2. ZOMETA [Suspect]
     Indication: BREAST CANCER METASTATIC
  3. TAXOL [Concomitant]
     Indication: BREAST CANCER METASTATIC
     Dates: start: 20000701, end: 20001201
  4. TAXOL [Concomitant]
     Dates: start: 20050201
  5. HERCEPTIN [Concomitant]
     Indication: BREAST CANCER METASTATIC
     Dates: start: 20000701, end: 20001201
  6. HERCEPTIN [Concomitant]
     Dates: start: 20050201
  7. RADIATION TREATMENT [Concomitant]
     Indication: BREAST CANCER METASTATIC
     Dosage: 6840 CGY EXTERNAL BEAM
  8. TAMOXIFEN [Concomitant]
     Dosage: 20 MG, QD
     Route: 048
     Dates: start: 19980101
  9. SYNTHROID [Concomitant]
     Dosage: 0.1 MG, QD
     Route: 048
  10. LIPITOR [Concomitant]
     Dosage: 10 MG, QD
     Route: 048
  11. PRILOSEC [Concomitant]
     Dosage: 20 MG, QD
     Route: 048
  12. VITAMIN E [Concomitant]
     Dosage: 400 IU, QD
     Route: 048
  13. CALCIUM [Concomitant]
     Dosage: 600 MG, QD
     Route: 048
  14. AROMASIN [Concomitant]
     Dosage: 25 MG, QD
     Route: 048
  15. COUMADIN [Concomitant]
     Dosage: 1 MG, QD
     Route: 048

REACTIONS (22)
  - ANXIETY [None]
  - BIOPSY BONE ABNORMAL [None]
  - BONE DEBRIDEMENT [None]
  - BONE DISORDER [None]
  - BONE SCAN ABNORMAL [None]
  - BONE SWELLING [None]
  - CARDIOMYOPATHY [None]
  - ERYTHEMA [None]
  - GINGIVAL PAIN [None]
  - GINGIVITIS [None]
  - IMPAIRED HEALING [None]
  - INJURY [None]
  - ORAL DISCOMFORT [None]
  - OSTEONECROSIS [None]
  - PAIN [None]
  - PAIN IN JAW [None]
  - PARAESTHESIA [None]
  - PLEURAL EFFUSION [None]
  - PRIMARY SEQUESTRUM [None]
  - PULMONARY MASS [None]
  - TOOTH EXTRACTION [None]
  - TOOTHACHE [None]
